FAERS Safety Report 8107882-0 (Version None)
Quarter: 2012Q1

REPORT INFORMATION
  Report Type: 
  Country: None (occurrence: None)
  Receive Date: 20120202
  Receipt Date: 20120124
  Transmission Date: 20120608
  Serious: Yes (Other)
  Sender: FDA-Public Use
  Company Number: US-PFIZER INC-2012018854

PATIENT
  Sex: Male

DRUGS (3)
  1. GENOTROPIN [Suspect]
     Indication: BODY HEIGHT BELOW NORMAL
     Dosage: 0.6 MG, 1X/DAY
     Route: 058
     Dates: start: 20111201
  2. FLOVENT [Concomitant]
     Indication: ASTHMA
     Dosage: UNK
  3. ALBUTEROL [Concomitant]
     Indication: ASTHMA
     Dosage: UNK

REACTIONS (7)
  - NASOPHARYNGITIS [None]
  - CONTUSION [None]
  - PYREXIA [None]
  - INJECTION SITE HAEMATOMA [None]
  - ASTHMA [None]
  - MALAISE [None]
  - INJECTION SITE SWELLING [None]
